FAERS Safety Report 24304228 (Version 1)
Quarter: 2024Q3

REPORT INFORMATION
  Report Type: Report from Study
  Country: DE (occurrence: DE)
  Receive Date: 20240910
  Receipt Date: 20240910
  Transmission Date: 20241016
  Serious: Yes (Hospitalization)
  Sender: ROCHE
  Company Number: DE-ROCHE-10000070540

PATIENT
  Age: 64 Year
  Sex: Female

DRUGS (1)
  1. OBINUTUZUMAB [Suspect]
     Active Substance: OBINUTUZUMAB
     Indication: Follicular lymphoma
     Dosage: SUBSEQUENT DOSE: 14-AUG-2023, 09-OCT-2023, 04-DEC-2023, 09-APR-2024
     Route: 042
     Dates: start: 20230814

REACTIONS (6)
  - Urinary tract infection [Recovered/Resolved]
  - Arthritis reactive [Recovered/Resolved]
  - Polyarthritis [Recovered/Resolved]
  - COVID-19 [Recovered/Resolved]
  - Pneumonia [Recovered/Resolved]
  - Superinfection bacterial [Recovered/Resolved]

NARRATIVE: CASE EVENT DATE: 20230929
